FAERS Safety Report 9508143 (Version 1)
Quarter: 2013Q3

REPORT INFORMATION
  Report Type: Spontaneous
  Country: US (occurrence: US)
  Receive Date: 20130909
  Receipt Date: 20130909
  Transmission Date: 20140515
  Serious: No
  Sender: FDA-Public Use
  Company Number: US-PFIZER INC-2013256223

PATIENT
  Age: 21 Month
  Sex: Female
  Weight: 11.34 kg

DRUGS (1)
  1. INFANT ADVIL CONCENTRATED DROPS [Suspect]
     Indication: PYREXIA
     Dosage: 1.25 ML, UNK

REACTIONS (1)
  - Drug ineffective [Unknown]
